FAERS Safety Report 4839172-3 (Version None)
Quarter: 2005Q4

REPORT INFORMATION
  Report Type: 
  Country: None (occurrence: None)
  Receive Date: 20051031
  Receipt Date: 20050428
  Transmission Date: 20060501
  Serious: No
  Sender: FDA-Public Use
  Company Number: 200513682US

PATIENT
  Age: 26 Year
  Sex: Male
  Weight: 72.7 kg

DRUGS (1)
  1. KETEK [Suspect]

REACTIONS (1)
  - DYSGEUSIA [None]
